FAERS Safety Report 18740138 (Version 1)
Quarter: 2021Q1

REPORT INFORMATION
  Report Type: Spontaneous
  Country: US (occurrence: US)
  Receive Date: 20210114
  Receipt Date: 20210114
  Transmission Date: 20210419
  Serious: Yes (Hospitalization, Other)
  Sender: FDA-Public Use
  Company Number: US-BAYER-2021-019826

PATIENT
  Age: 60 Year
  Sex: Female

DRUGS (1)
  1. MAGNESIUM HYDROXIDE. [Suspect]
     Active Substance: MAGNESIUM HYDROXIDE

REACTIONS (3)
  - Blood magnesium increased [None]
  - Hypermagnesaemia [None]
  - Overdose [None]
